FAERS Safety Report 4871448-6 (Version None)
Quarter: 2006Q1

REPORT INFORMATION
  Report Type: 
  Country: None (occurrence: None)
  Receive Date: 20060103
  Receipt Date: 20051028
  Transmission Date: 20060701
  Serious: Yes (Life-Threatening, Hospitalization)
  Sender: FDA-Public Use
  Company Number: FR-MERCK-0511FRA00002

PATIENT
  Age: 72 Year
  Sex: Female
  Weight: 80 kg

DRUGS (5)
  1. FOSAMAX [Suspect]
     Indication: OSTEOPOROSIS
     Route: 048
     Dates: start: 20050701, end: 20051023
  2. CLONAZEPAM [Concomitant]
     Route: 048
  3. VALPROATE SODIUM [Concomitant]
     Route: 048
  4. CALCIUM CARBONATE AND CHOLECALCIFEROL [Concomitant]
     Indication: OSTEOPOROSIS
     Route: 048
  5. LEVOTHYROXINE SODIUM [Concomitant]
     Indication: HYPOTHYROIDISM
     Route: 048

REACTIONS (9)
  - ACUTE RESPIRATORY FAILURE [None]
  - DRUG ADMINISTRATION ERROR [None]
  - GASTRIC ULCER [None]
  - LARYNGEAL OEDEMA [None]
  - OESOPHAGEAL ULCER [None]
  - PHARYNGEAL OEDEMA [None]
  - PHARYNGEAL ULCERATION [None]
  - PNEUMONIA ASPIRATION [None]
  - SALIVARY HYPERSECRETION [None]
